FAERS Safety Report 5312557-7 (Version None)
Quarter: 2007Q2

REPORT INFORMATION
  Report Type: 
  Country: None (occurrence: None)
  Receive Date: 20070430
  Receipt Date: 20070118
  Transmission Date: 20071010
  Serious: No
  Sender: FDA-Public Use
  Company Number: 2007UW01004

PATIENT
  Age: 73 Year
  Sex: Female
  Weight: 65.8 kg

DRUGS (11)
  1. NEXIUM [Suspect]
     Indication: GASTRITIS
     Route: 048
     Dates: start: 20070101
  2. NEXIUM [Suspect]
     Indication: GASTROOESOPHAGEAL REFLUX DISEASE
     Route: 048
     Dates: start: 20070101
  3. LIPITOR [Suspect]
  4. TOPROL-XL [Concomitant]
  5. AVAPRO [Concomitant]
  6. EVISTA [Concomitant]
  7. FOSAMAX [Concomitant]
  8. TIMOLOL MALEATE [Concomitant]
  9. OPTHALMOLOGIST DROPS [Concomitant]
  10. TOPAMAX [Concomitant]
  11. AMBIEN [Concomitant]

REACTIONS (1)
  - THROAT IRRITATION [None]
